FAERS Safety Report 4680080-9 (Version None)
Quarter: 2005Q2

REPORT INFORMATION
  Report Type: 
  Country: None (occurrence: None)
  Receive Date: 20050531
  Receipt Date: 20050509
  Transmission Date: 20051028
  Serious: Yes (Hospitalization)
  Sender: FDA-Public Use
  Company Number: DE_050415629

PATIENT
  Age: 74 Year
  Sex: Female

DRUGS (2)
  1. YENTREVE (DULOXETINE HYDROCHLORIDE) [Suspect]
     Dosage: 40 MG DAY
     Dates: start: 20050401
  2. DUSPATAL (MEBEVERINE EMBONATE) [Concomitant]

REACTIONS (5)
  - ABDOMINAL PAIN UPPER [None]
  - DIZZINESS [None]
  - DRUG TOXICITY [None]
  - SALIVARY HYPERSECRETION [None]
  - TREMOR [None]
